FAERS Safety Report 7450794-6 (Version None)
Quarter: 2011Q2

REPORT INFORMATION
  Report Type: 
  Country: None (occurrence: None)
  Receive Date: 20110502
  Receipt Date: 20110420
  Transmission Date: 20111010
  Serious: Yes (Hospitalization, Other)
  Sender: FDA-Public Use
  Company Number: US-AMGEN-USASP2011013202

PATIENT
  Age: 66 Year
  Sex: Male
  Weight: 106.58 kg

DRUGS (5)
  1. GLUCOCORTICOIDS [Concomitant]
  2. SULFASALAZINE [Concomitant]
  3. ENBREL [Suspect]
     Indication: PSORIATIC ARTHROPATHY
     Dosage: 50 MG, QWK
     Route: 058
     Dates: start: 20090101
  4. METHOTREXATE [Concomitant]
  5. PLAQUENIL [Concomitant]

REACTIONS (2)
  - RENAL CANCER [None]
  - BLADDER CANCER [None]
